FAERS Safety Report 7329277-X (Version None)
Quarter: 2011Q1

REPORT INFORMATION
  Report Type: 
  Country: None (occurrence: None)
  Receive Date: 20110303
  Receipt Date: 20110221
  Transmission Date: 20110831
  Serious: Yes (Life-Threatening, Hospitalization)
  Sender: FDA-Public Use
  Company Number: B0693970A

PATIENT
  Sex: Male
  Weight: 78 kg

DRUGS (27)
  1. ATORVASTATIN CALCIUM [Concomitant]
     Indication: BLOOD CHOLESTEROL INCREASED
     Dosage: 20MG PER DAY
     Route: 048
     Dates: start: 20070601
  2. COLPERMIN [Concomitant]
     Indication: ABDOMINAL DISTENSION
     Route: 048
     Dates: start: 20100824
  3. TINZAPARIN [Concomitant]
     Route: 058
     Dates: start: 20110106
  4. FOLIC ACID [Concomitant]
     Dosage: 5MG PER DAY
     Route: 048
     Dates: start: 20110113
  5. LACTULOSE [Concomitant]
     Indication: CONSTIPATION PROPHYLAXIS
     Route: 048
     Dates: start: 20100815
  6. CALCICHEW [Suspect]
     Indication: CALCIUM DEFICIENCY
     Dosage: 2TAB TWICE PER DAY
     Route: 048
     Dates: start: 20100831
  7. DIPROBASE CREAM [Concomitant]
     Indication: DRY SKIN
     Route: 061
     Dates: start: 20110115
  8. NYSTATIN [Concomitant]
     Indication: FUNGAL INFECTION
     Route: 061
     Dates: start: 20110115
  9. MELPHALAN [Suspect]
     Indication: MULTIPLE MYELOMA
     Dates: start: 20100812
  10. BUMETANIDE [Suspect]
     Indication: FLUID RETENTION
     Dosage: 2MG PER DAY
     Route: 048
     Dates: start: 20101104
  11. DUTASTERIDE [Suspect]
     Indication: BENIGN PROSTATIC HYPERPLASIA
     Dosage: 500UG PER DAY
     Route: 048
     Dates: start: 20060727
  12. ASPIRIN [Suspect]
     Indication: PROPHYLAXIS
     Dosage: 75MG PER DAY
     Route: 048
     Dates: start: 20100923, end: 20110103
  13. NASEPTIN [Concomitant]
     Indication: STAPHYLOCOCCAL INFECTION
     Route: 061
     Dates: start: 20110111, end: 20110111
  14. PREDNISONE [Suspect]
     Indication: MULTIPLE MYELOMA
     Dosage: 150MG PER DAY
     Dates: start: 20100812
  15. RANITIDINE [Concomitant]
     Indication: PROPHYLAXIS
     Dosage: 150MG PER DAY
     Route: 048
     Dates: start: 19980928
  16. TAMSULOSIN [Concomitant]
     Indication: URINARY RETENTION
     Dosage: 400MG PER DAY
     Route: 048
     Dates: start: 20040608
  17. BISOPROLOL FUMARATE [Concomitant]
     Indication: HYPERTENSION
     Dosage: 2.5MG PER DAY
     Route: 048
     Dates: start: 20070830
  18. CO-CODAMOL [Concomitant]
     Indication: PAIN
     Route: 048
     Dates: start: 20100810
  19. COTRIM [Concomitant]
     Indication: INFECTION PROPHYLAXIS
     Route: 048
     Dates: start: 20100820, end: 20110102
  20. AMPICILLIN SODIUM/SULBACTAM SODIUM [Concomitant]
     Indication: URINARY TRACT INFECTION
     Route: 042
     Dates: start: 20110102, end: 20110102
  21. THALIDOMIDE [Suspect]
     Indication: MULTIPLE MYELOMA
     Dosage: 200MG PER DAY
     Route: 048
     Dates: start: 20100812
  22. MOVIPREP [Suspect]
     Indication: CONSTIPATION PROPHYLAXIS
     Route: 048
     Dates: start: 20100924
  23. FUROSEMIDE [Concomitant]
     Dosage: 10MG PER DAY
     Route: 042
     Dates: start: 20110105, end: 20110105
  24. PERINDOPRIL [Concomitant]
     Indication: PROPHYLAXIS
     Dosage: 2MG PER DAY
     Route: 048
     Dates: start: 20100531
  25. ACYCLOVIR [Concomitant]
     Indication: INFECTION PROPHYLAXIS
     Dosage: 800MG TWICE PER DAY
     Route: 048
     Dates: start: 20100812, end: 20110104
  26. CYCLIZINE [Concomitant]
     Indication: NAUSEA
     Route: 048
     Dates: start: 20100825
  27. NEPRO [Concomitant]
     Route: 048
     Dates: start: 20110106

REACTIONS (6)
  - RENAL FAILURE ACUTE [None]
  - ENDOCARDITIS [None]
  - DYSPNOEA [None]
  - FATIGUE [None]
  - NEUTROPENIC SEPSIS [None]
  - PANCYTOPENIA [None]
